FAERS Safety Report 25272989 (Version 1)
Quarter: 2025Q2

REPORT INFORMATION
  Report Type: Spontaneous
  Country: US (occurrence: None)
  Receive Date: 20250505
  Receipt Date: 20250505
  Transmission Date: 20250716
  Serious: Yes (Hospitalization)
  Sender: FDA-CTU
  Company Number: None

PATIENT
  Age: 48 Year
  Sex: Male
  Weight: 63.5 kg

DRUGS (6)
  1. RETEVMO [Suspect]
     Active Substance: SELPERCATINIB
     Indication: Thyroid cancer
     Dosage: 160 MG TWICE A DAY ORAL
     Route: 048
     Dates: start: 20250409, end: 20250423
  2. CALCITRIOL [Concomitant]
     Active Substance: CALCITRIOL
     Dates: start: 20211015
  3. MELOXICAM [Concomitant]
     Active Substance: MELOXICAM
     Dates: start: 20220608
  4. calcium carbonate 648 mg [Concomitant]
     Dates: start: 20220810
  5. levothyroxine 0.175 mg [Concomitant]
     Dates: start: 20220308
  6. LORATADINE [Concomitant]
     Active Substance: LORATADINE
     Dates: start: 20230725

REACTIONS (5)
  - Hypertension [None]
  - Headache [None]
  - Pyrexia [None]
  - Pain [None]
  - Liver function test increased [None]

NARRATIVE: CASE EVENT DATE: 20250423
